FAERS Safety Report 26091109 (Version 3)
Quarter: 2025Q4

REPORT INFORMATION
  Report Type: Spontaneous
  Country: GB (occurrence: GB)
  Receive Date: 20251126
  Receipt Date: 20251231
  Transmission Date: 20260117
  Serious: Yes (Other)
  Sender: RANBAXY
  Company Number: GB-TEVA-VS-3388846

PATIENT
  Age: 45 Year
  Sex: Female

DRUGS (7)
  1. SUMATRIPTAN [Suspect]
     Active Substance: SUMATRIPTAN
     Indication: Product used for unknown indication
     Dosage: UNK
     Route: 065
  2. DULOXETINE [Suspect]
     Active Substance: DULOXETINE
     Indication: Product used for unknown indication
     Dosage: UNK
     Route: 065
  3. COCODAMOL [Suspect]
     Active Substance: ACETAMINOPHEN\CODEINE PHOSPHATE
     Indication: Product used for unknown indication
     Dosage: UNK
     Route: 065
  4. PIZOTYLINE [Suspect]
     Active Substance: PIZOTYLINE
     Indication: Product used for unknown indication
     Dosage: UNK
     Route: 065
  5. DOMPERIDONE [Suspect]
     Active Substance: DOMPERIDONE
     Indication: Product used for unknown indication
     Dosage: UNK
     Route: 065
  6. RABEPRAZOLE [Suspect]
     Active Substance: RABEPRAZOLE
     Indication: Product used for unknown indication
     Dosage: UNK
     Route: 065
  7. QUININE [Suspect]
     Active Substance: QUININE
     Indication: Product used for unknown indication
     Dosage: 4.8 GRAM, UNK
     Route: 065

REACTIONS (8)
  - Blindness [Recovering/Resolving]
  - Macular oedema [Unknown]
  - Retinal vascular disorder [Unknown]
  - Macular degeneration [Recovered/Resolved]
  - Retinogram abnormal [Unknown]
  - Intentional overdose [Unknown]
  - Visual pathway disorder [Unknown]
  - Retinal disorder [Unknown]
